FAERS Safety Report 6511762-1 (Version None)
Quarter: 2009Q4

REPORT INFORMATION
  Report Type: 
  Country: None (occurrence: None)
  Receive Date: 20091222
  Receipt Date: 20090403
  Transmission Date: 20100525
  Serious: No
  Sender: FDA-Public Use
  Company Number: US-ASTRAZENECA-2009UW08519

PATIENT
  Age: 70 Year
  Sex: Female
  Weight: 83.9 kg

DRUGS (6)
  1. CRESTOR [Suspect]
     Indication: BLOOD CHOLESTEROL INCREASED
     Route: 048
  2. ZETIA [Concomitant]
     Route: 048
  3. DIOVAN [Concomitant]
     Route: 048
  4. METOPROLOL TARTRATE [Concomitant]
  5. CALCIUM GLUCONATE [Concomitant]
  6. TYLENOL (CAPLET) [Concomitant]

REACTIONS (2)
  - MUSCLE SPASMS [None]
  - MYALGIA [None]
